FAERS Safety Report 9881770 (Version 1)
Quarter: 2014Q1

REPORT INFORMATION
  Report Type: Spontaneous
  Country: OM (occurrence: OM)
  Receive Date: 20140207
  Receipt Date: 20140207
  Transmission Date: 20141002
  Serious: Yes (Life-Threatening, Other)
  Sender: FDA-Public Use
  Company Number: PHHY2014OM014137

PATIENT
  Age: 33 Year
  Sex: Male

DRUGS (1)
  1. SANDOSTATIN LAR [Suspect]
     Dosage: UNK UKN, MONTHLY
     Route: 030

REACTIONS (3)
  - Upper gastrointestinal haemorrhage [Recovering/Resolving]
  - Portal vein thrombosis [Unknown]
  - Gastric varices [Unknown]
